FAERS Safety Report 11789300 (Version 1)
Quarter: 2015Q4

REPORT INFORMATION
  Report Type: Spontaneous
  Country: US (occurrence: US)
  Receive Date: 20151201
  Receipt Date: 20151201
  Transmission Date: 20160305
  Serious: No
  Sender: FDA-Public Use
  Company Number: US-FRI-1000072264

PATIENT
  Age: 72 Year
  Sex: Male

DRUGS (3)
  1. NAMENDA [Suspect]
     Active Substance: MEMANTINE HYDROCHLORIDE
     Dosage: 10MG AM, 10MG PM
     Route: 048
     Dates: start: 20141024, end: 20141024
  2. NAMENDA [Suspect]
     Active Substance: MEMANTINE HYDROCHLORIDE
     Indication: MIGRAINE
     Dosage: 5MG
     Route: 048
     Dates: start: 20141010, end: 20141016
  3. NAMENDA [Suspect]
     Active Substance: MEMANTINE HYDROCHLORIDE
     Dosage: 10MG
     Route: 048
     Dates: start: 20141017, end: 20141023

REACTIONS (3)
  - Dysuria [Recovered/Resolved]
  - Off label use [Recovered/Resolved]
  - Hallucination, auditory [Not Recovered/Not Resolved]

NARRATIVE: CASE EVENT DATE: 201410
